FAERS Safety Report 5365535-6 (Version None)
Quarter: 2007Q2

REPORT INFORMATION
  Report Type: 
  Country: None (occurrence: None)
  Receive Date: 20070621
  Receipt Date: 20070620
  Transmission Date: 20071010
  Serious: Yes (Other)
  Sender: FDA-Public Use
  Company Number: A0658984A

PATIENT
  Age: 4 Year
  Sex: Male
  Weight: 15 kg

DRUGS (3)
  1. AMOXIL [Suspect]
     Indication: PNEUMONIA
     Dosage: 5ML THREE TIMES PER DAY
     Route: 048
     Dates: start: 20070613, end: 20070617
  2. PREDNISOLONE [Concomitant]
     Dosage: 5ML PER DAY
     Dates: start: 20070612, end: 20070617
  3. BEROTEC [Concomitant]
     Dosage: 1DROP TWICE PER DAY
     Dates: start: 20070612

REACTIONS (2)
  - PNEUMONIA [None]
  - PYREXIA [None]
